FAERS Safety Report 7712607-4 (Version None)
Quarter: 2011Q3

REPORT INFORMATION
  Report Type: 
  Country: None (occurrence: None)
  Receive Date: 20110826
  Receipt Date: 20110817
  Transmission Date: 20111222
  Serious: Yes (Other)
  Sender: FDA-Public Use
  Company Number: US-JNJFOC-20110808172

PATIENT
  Age: 31 Year
  Sex: Female

DRUGS (2)
  1. REMICADE [Suspect]
     Indication: COLITIS ULCERATIVE
     Route: 042
     Dates: start: 20110101
  2. REMICADE [Suspect]
     Dosage: 4TH INFUSION
     Route: 042
     Dates: start: 20110816

REACTIONS (6)
  - DYSPNOEA [None]
  - THROAT IRRITATION [None]
  - SCLERAL DISORDER [None]
  - PAINFUL RESPIRATION [None]
  - INFUSION RELATED REACTION [None]
  - ERYTHEMA [None]
